FAERS Safety Report 10653212 (Version 7)
Quarter: 2015Q3

REPORT INFORMATION
  Report Type: Spontaneous
  Country: JP (occurrence: JP)
  Receive Date: 20141215
  Receipt Date: 20150818
  Transmission Date: 20151125
  Serious: Yes (Hospitalization, Other)
  Sender: FDA-Public Use
  Company Number: JP-GLAXOSMITHKLINE-JP2014JPN032816

PATIENT
  Age: 78 Year
  Sex: Male

DRUGS (1)
  1. VOTRIENT [Suspect]
     Active Substance: PAZOPANIB HYDROCHLORIDE
     Indication: RENAL CELL CARCINOMA
     Dosage: 800 MG, QD
     Route: 048
     Dates: start: 201411, end: 201411

REACTIONS (11)
  - Penile erythema [Recovering/Resolving]
  - Decreased appetite [Unknown]
  - Malaise [Unknown]
  - Platelet count decreased [Recovering/Resolving]
  - Hypoalbuminaemia [Not Recovered/Not Resolved]
  - Proteinuria [Unknown]
  - Anaemia [Recovering/Resolving]
  - Skin oedema [Recovering/Resolving]
  - Perivascular dermatitis [Recovering/Resolving]
  - Pyoderma gangrenosum [Recovering/Resolving]
  - Genital ulceration [Unknown]

NARRATIVE: CASE EVENT DATE: 201411
